FAERS Safety Report 7238855-8 (Version None)
Quarter: 2011Q1

REPORT INFORMATION
  Report Type: 
  Country: None (occurrence: None)
  Receive Date: 20110121
  Receipt Date: 20110110
  Transmission Date: 20110831
  Serious: Yes (Death, Life-Threatening)
  Sender: FDA-Public Use
  Company Number: PHHY2011IT02173

PATIENT
  Sex: Female

DRUGS (6)
  1. ADALAT [Concomitant]
     Dosage: 20 MG, UNK
  2. TRACLEER [Concomitant]
     Dosage: 125 MG, UNK
  3. GLEEVEC [Suspect]
     Indication: SCLERODERMA
     Dosage: 200 MG, UNK
     Dates: start: 20101218, end: 20101229
  4. ASPIRIN [Concomitant]
     Dosage: 1 DF, UNK
  5. TRIATEC [Concomitant]
     Dosage: 5 MG, UNK
  6. COLCHICINE [Concomitant]
     Indication: BURSITIS

REACTIONS (10)
  - CARDIO-RESPIRATORY ARREST [None]
  - DYSPNOEA [None]
  - HYPERPYREXIA [None]
  - HYPOXIA [None]
  - DIARRHOEA [None]
  - WEIGHT DECREASED [None]
  - GENERAL PHYSICAL HEALTH DETERIORATION [None]
  - DECREASED APPETITE [None]
  - NAUSEA [None]
  - PAIN IN EXTREMITY [None]
